FAERS Safety Report 8145694-2 (Version None)
Quarter: 2012Q1

REPORT INFORMATION
  Report Type: 
  Country: None (occurrence: None)
  Receive Date: 20120217
  Receipt Date: 20110629
  Transmission Date: 20120608
  Serious: No
  Sender: FDA-Public Use
  Company Number: US-ALLERGAN-1108875US

PATIENT
  Age: 68 Year
  Sex: Male

DRUGS (1)
  1. TAZORAC [Suspect]
     Indication: PSORIASIS
     Dosage: 1 DF, QD
     Route: 061
     Dates: start: 20110619, end: 20110629

REACTIONS (5)
  - ERYTHEMA [None]
  - DRUG INEFFECTIVE [None]
  - DRY SKIN [None]
  - PARAESTHESIA [None]
  - PRURITUS [None]
